FAERS Safety Report 5814392-X (Version None)
Quarter: 2008Q3

REPORT INFORMATION
  Report Type: 
  Country: None (occurrence: None)
  Receive Date: 20080718
  Receipt Date: 20080708
  Transmission Date: 20090109
  Serious: Yes (Hospitalization)
  Sender: FDA-Public Use
  Company Number: US-JNJFOC-20080702664

PATIENT
  Sex: Female
  Weight: 63.5 kg

DRUGS (1)
  1. REMICADE [Suspect]
     Indication: DRUG USE FOR UNKNOWN INDICATION
     Dosage: DOSE OF 3 VIALS; DOSE GIVEN ON 23-MAY-2008
     Route: 042

REACTIONS (3)
  - PNEUMONIA [None]
  - SWELLING [None]
  - WEIGHT INCREASED [None]
